FAERS Safety Report 16771214 (Version 2)
Quarter: 2019Q3

REPORT INFORMATION
  Report Type: Report from Study
  Country: US (occurrence: US)
  Receive Date: 20190904
  Receipt Date: 20190907
  Transmission Date: 20191005
  Serious: Yes (Hospitalization)
  Sender: FDA-Public Use
  Company Number: US-UCBSA-2019036964

PATIENT
  Age: 67 Year
  Sex: Female

DRUGS (2)
  1. ROTIGOTINE [Suspect]
     Active Substance: ROTIGOTINE
     Indication: PARKINSON^S DISEASE
     Dosage: 4 MG + 8 MG APPLY ON TO SKIN DAILY
     Route: 062
     Dates: start: 20170609
  2. ROTIGOTINE [Suspect]
     Active Substance: ROTIGOTINE
     Dosage: 12 MILLIGRAM, ONCE DAILY (QD)
     Dates: start: 20180611

REACTIONS (6)
  - Incoherent [Unknown]
  - Off label use [Unknown]
  - Hospitalisation [Unknown]
  - Dysphagia [Unknown]
  - Aphasia [Unknown]
  - Staring [Unknown]

NARRATIVE: CASE EVENT DATE: 20170609
